FAERS Safety Report 20884412 (Version 1)
Quarter: 2022Q2

REPORT INFORMATION
  Report Type: Spontaneous
  Country: PR (occurrence: PR)
  Receive Date: 20220527
  Receipt Date: 20220527
  Transmission Date: 20220721
  Serious: No
  Sender: FDA-Public Use
  Company Number: PR-PFIZER INC-202200732123

PATIENT
  Age: 59 Year
  Sex: Female
  Weight: 49.9 kg

DRUGS (2)
  1. PAXLOVID [Suspect]
     Active Substance: NIRMATRELVIR\RITONAVIR
     Indication: COVID-19 treatment
     Dosage: 3 DF, 2X/DAY (300MG-100MG TAKES THREE TABLETS TOGETHER EVERY 12 HOURS)
  2. SYNTHROID [Concomitant]
     Active Substance: LEVOTHYROXINE SODIUM
     Dosage: UNK

REACTIONS (13)
  - Hypotension [Unknown]
  - Chest pain [Unknown]
  - Chest discomfort [Unknown]
  - Nervousness [Unknown]
  - Nausea [Unknown]
  - Diarrhoea [Unknown]
  - Feeling abnormal [Unknown]
  - Taste disorder [Unknown]
  - Asthenia [Unknown]
  - Palpitations [Unknown]
  - Vomiting [Unknown]
  - Weight decreased [Unknown]
  - Cardiac discomfort [Unknown]
